FAERS Safety Report 7603121-5 (Version None)
Quarter: 2011Q3

REPORT INFORMATION
  Report Type: 
  Country: None (occurrence: None)
  Receive Date: 20110712
  Receipt Date: 20110705
  Transmission Date: 20111222
  Serious: Yes (Death, Other)
  Sender: FDA-Public Use
  Company Number: US-GENZYME-THYM-1002467

PATIENT

DRUGS (7)
  1. METHOTREXATE [Suspect]
     Indication: PROPHYLAXIS AGAINST GRAFT VERSUS HOST DISEASE
     Dosage: 8 MG/M2, UNK
  2. FENTANYL [Concomitant]
     Indication: PRODUCT USED FOR UNKNOWN INDICATION
     Route: 042
  3. THYMOGLOBULIN [Suspect]
     Indication: BONE MARROW CONDITIONING REGIMEN
     Dosage: 2 MG/KG, UNK
     Route: 042
     Dates: start: 20100203, end: 20100206
  4. FLUCONAZOLE [Concomitant]
     Indication: INFECTION PROPHYLAXIS
  5. ACYCLOVIR [Concomitant]
     Indication: INFECTION PROPHYLAXIS
  6. CYCLOPHOSPHAMIDE [Suspect]
     Indication: BONE MARROW CONDITIONING REGIMEN
  7. TACROLIMUS [Suspect]
     Indication: PROPHYLAXIS AGAINST GRAFT VERSUS HOST DISEASE

REACTIONS (4)
  - FEBRILE NEUTROPENIA [None]
  - RENAL IMPAIRMENT [None]
  - SERUM SICKNESS [None]
  - ZYGOMYCOSIS [None]
